FAERS Safety Report 25015219 (Version 1)
Quarter: 2025Q1

REPORT INFORMATION
  Report Type: Spontaneous
  Country: CA (occurrence: CA)
  Receive Date: 20250226
  Receipt Date: 20250226
  Transmission Date: 20250409
  Serious: Yes (Hospitalization)
  Sender: JOHNSON AND JOHNSON
  Company Number: CA-JNJFOC-20250258329

PATIENT
  Age: 81 Year
  Sex: Male
  Weight: 117 kg

DRUGS (18)
  1. ZYTIGA [Suspect]
     Active Substance: ABIRATERONE ACETATE
     Indication: Product used for unknown indication
     Route: 048
  2. DOCETAXEL [Suspect]
     Active Substance: DOCETAXEL
     Indication: Prostate cancer
  3. ACETAMINOPHEN [Concomitant]
     Active Substance: ACETAMINOPHEN
  4. CALCIUM CARBONATE [Concomitant]
     Active Substance: CALCIUM CARBONATE
  5. DEXAMETHASONE [Concomitant]
     Active Substance: DEXAMETHASONE
  6. ELIGARD [Concomitant]
     Active Substance: LEUPROLIDE ACETATE
  7. ELIQUIS [Concomitant]
     Active Substance: APIXABAN
  8. FUROSEMIDE [Concomitant]
     Active Substance: FUROSEMIDE
  9. JARDIANCE [Concomitant]
     Active Substance: EMPAGLIFLOZIN
  10. ONDANSETRON [Concomitant]
     Active Substance: ONDANSETRON
  11. PEGFILGRASTIM [Concomitant]
     Active Substance: PEGFILGRASTIM
  12. POTASSIUM [Concomitant]
     Active Substance: POTASSIUM
  13. PRAVASTATIN SODIUM [Concomitant]
     Active Substance: PRAVASTATIN SODIUM
  14. PREGABALIN [Concomitant]
     Active Substance: PREGABALIN
  15. PROCHLORPERAZINE [Concomitant]
     Active Substance: PROCHLORPERAZINE
  16. SPIRONOLACTONE [Concomitant]
     Active Substance: SPIRONOLACTONE
  17. TELMISARTAN [Concomitant]
     Active Substance: TELMISARTAN
  18. VITAMIN D3 [Concomitant]
     Active Substance: CHOLECALCIFEROL

REACTIONS (5)
  - Abdominal pain [Recovered/Resolved]
  - Diarrhoea [Recovered/Resolved]
  - Fatigue [Recovered/Resolved]
  - Lethargy [Recovered/Resolved]
  - Nausea [Recovered/Resolved]
